FAERS Safety Report 25710582 (Version 2)
Quarter: 2025Q3

REPORT INFORMATION
  Report Type: Spontaneous
  Country: EU (occurrence: EU)
  Receive Date: 20250821
  Receipt Date: 20250825
  Transmission Date: 20251021
  Serious: Yes (Hospitalization, Other)
  Sender: SANOFI AVENTIS
  Company Number: None

PATIENT
  Sex: Male

DRUGS (5)
  1. ACETAMINOPHEN [Suspect]
     Active Substance: ACETAMINOPHEN
     Indication: Pain
     Dosage: 4 G, QD (1G*4/ DAY)
     Route: 048
     Dates: start: 20250722, end: 20250801
  2. ENOXAPARIN SODIUM [Suspect]
     Active Substance: ENOXAPARIN SODIUM
     Indication: Pulmonary embolism
     Dosage: 4000 IU, QD
     Route: 058
     Dates: start: 20250721, end: 20250725
  3. ENOXAPARIN SODIUM [Suspect]
     Active Substance: ENOXAPARIN SODIUM
     Dosage: 8000 IU, QD
     Route: 058
     Dates: start: 20250726, end: 20250801
  4. NEFOPAM HYDROCHLORIDE [Concomitant]
     Active Substance: NEFOPAM HYDROCHLORIDE
     Indication: Pain
     Dosage: 120 MG, QD
     Route: 042
     Dates: start: 20250724, end: 20250728
  5. KETAMINE [Concomitant]
     Active Substance: KETAMINE
     Indication: Pain
     Dosage: 120 MG, QD
     Route: 042
     Dates: start: 20250720, end: 20250721

REACTIONS (2)
  - Mixed liver injury [Recovering/Resolving]
  - Rash maculo-papular [Recovering/Resolving]

NARRATIVE: CASE EVENT DATE: 20250727
